FAERS Safety Report 5323709-4 (Version None)
Quarter: 2007Q2

REPORT INFORMATION
  Report Type: 
  Country: None (occurrence: None)
  Receive Date: 20070514
  Receipt Date: 20070503
  Transmission Date: 20071010
  Serious: Yes (Hospitalization)
  Sender: FDA-Public Use
  Company Number: US-ROCHE-495798

PATIENT
  Age: 34 Year
  Sex: Male

DRUGS (2)
  1. PEGASYS [Suspect]
     Indication: HEPATITIS C
     Dosage: REPORTED AS ^HAS BEEN ON TREATMENT FOR 9 MONTHS.^
     Route: 065
     Dates: start: 20060801
  2. COPEGUS [Suspect]
     Indication: HEPATITIS C
     Dosage: REPORTED AS ^HAS BEEN ON TREATMENT FOR 9 MONTHS.^
     Route: 065
     Dates: start: 20060801

REACTIONS (3)
  - NEUROPATHY PERIPHERAL [None]
  - PERONEAL NERVE PALSY [None]
  - ROAD TRAFFIC ACCIDENT [None]
